FAERS Safety Report 8010326-0 (Version None)
Quarter: 2011Q4

REPORT INFORMATION
  Report Type: 
  Country: None (occurrence: None)
  Receive Date: 20111228
  Receipt Date: 20111215
  Transmission Date: 20120403
  Serious: Yes (Hospitalization)
  Sender: FDA-Public Use
  Company Number: DE-ELI_LILLY_AND_COMPANY-DE201112004162

PATIENT
  Sex: Female

DRUGS (2)
  1. CALCILAC [Concomitant]
  2. FORTEO [Suspect]
     Indication: OSTEOPOROSIS
     Dosage: UNK, QD
     Route: 058
     Dates: start: 20101206

REACTIONS (3)
  - TOOTH EXTRACTION [None]
  - DRUG DOSE OMISSION [None]
  - ORAL INFECTION [None]
